FAERS Safety Report 25690596 (Version 1)
Quarter: 2025Q3

REPORT INFORMATION
  Report Type: Spontaneous
  Country: EU (occurrence: EU)
  Receive Date: 20250818
  Receipt Date: 20250818
  Transmission Date: 20251020
  Serious: Yes (Other)
  Sender: TEVA
  Company Number: None

PATIENT
  Age: 74 Year
  Sex: Male
  Weight: 70 kg

DRUGS (1)
  1. TAMSULOSIN [Suspect]
     Active Substance: TAMSULOSIN
     Indication: Micturition disorder
     Dosage: 1X PER DAY, CAPSULE MGA / BRAND NAME NOT SPECIFIED
     Route: 048
     Dates: start: 20250415, end: 20250603

REACTIONS (1)
  - Retinal detachment [Not Recovered/Not Resolved]
